FAERS Safety Report 10314578 (Version 2)
Quarter: 2014Q3

REPORT INFORMATION
  Report Type: Report from Study
  Country: FR (occurrence: FR)
  Receive Date: 20140718
  Receipt Date: 20140718
  Transmission Date: 20150326
  Serious: Yes (Hospitalization)
  Sender: FDA-Public Use
  Company Number: FR-VERTEX PHARMACEUTICALS (CANADA)-AE-2011-000750

PATIENT
  Age: 68 Year
  Sex: Female
  Weight: 82 kg

DRUGS (26)
  1. COPEGUS [Suspect]
     Active Substance: RIBAVIRIN
     Indication: HEPATITIS C
     Dosage: 10000 MG, QD
     Route: 048
     Dates: start: 20110421
  2. COPEGUS [Suspect]
     Active Substance: RIBAVIRIN
     Dosage: 1200 MG, QD
     Route: 048
     Dates: start: 20110523
  3. LEVOTHYROX [Concomitant]
     Active Substance: LEVOTHYROXINE
     Dosage: 100 ?G, QD
     Route: 048
  4. DELURSAN [Concomitant]
     Active Substance: URSODIOL
     Indication: PROPHYLAXIS
     Dosage: 250 MG, UNK
     Route: 048
  5. VASTAREL [Concomitant]
     Active Substance: TRIMETAZIDINE DIHYDROCHLORIDE
     Indication: VERTIGO
     Dosage: 35 MG, QD
     Route: 048
  6. AERIUS [Concomitant]
     Active Substance: DESLORATADINE
     Indication: PRURITUS
     Dates: start: 20110721, end: 20110821
  7. DAFALGAN [Concomitant]
     Active Substance: ACETAMINOPHEN
     Indication: INFLUENZA
     Dosage: 500 MG, UNK
     Route: 065
     Dates: start: 20110421, end: 20110818
  8. COPEGUS [Suspect]
     Active Substance: RIBAVIRIN
     Dosage: 800 MG, QD
     Route: 048
     Dates: start: 20110427
  9. LOVENOX [Concomitant]
     Active Substance: ENOXAPARIN SODIUM
     Indication: PRODUCT USED FOR UNKNOWN INDICATION
     Dosage: 0.4 ML, QD
     Route: 065
     Dates: start: 20110927, end: 20111011
  10. EFFERALGAN [Concomitant]
     Active Substance: ACETAMINOPHEN
     Indication: INFLUENZA
     Dates: start: 20110421
  11. NEORECORMON [Concomitant]
     Active Substance: ERYTHROPOIETIN
     Indication: ANAEMIA
     Route: 058
     Dates: start: 20110525
  12. STILNOX [Concomitant]
     Active Substance: ZOLPIDEM TARTRATE
     Indication: INSOMNIA
     Dosage: 10 MG, QD
     Route: 065
     Dates: start: 20110818
  13. LASILIX [Concomitant]
     Active Substance: FUROSEMIDE
     Indication: OEDEMA
     Dosage: 40 MG, QD
     Dates: start: 20110915
  14. PEGASYS [Suspect]
     Active Substance: PEGINTERFERON ALFA-2A
     Indication: HEPATITIS C
     Dosage: 180 ?G, QW
     Route: 058
     Dates: start: 20110421
  15. ALOPLASTINE [Concomitant]
     Indication: PRURITUS
     Dosage: DOSAGE FORM: UNSPECIFIED
     Route: 065
     Dates: start: 20110530
  16. AMOXICILLIN. [Concomitant]
     Active Substance: AMOXICILLIN
     Indication: ERYSIPELAS
     Dates: start: 20110909
  17. VX-950 (TELAPREVIR) [Suspect]
     Active Substance: TELAPREVIR
     Indication: HEPATITIS C
     Dosage: 750 MG, TID
     Route: 048
     Dates: start: 20110523, end: 20110818
  18. COAPROVEL [Concomitant]
     Active Substance: HYDROCHLOROTHIAZIDE\IRBESARTAN
     Indication: HYPERTENSION
     Route: 048
  19. XYZALL [Concomitant]
     Active Substance: LEVOCETIRIZINE DIHYDROCHLORIDE
     Indication: PRURITUS
     Dates: start: 20110622, end: 20110721
  20. DIFFU-K [Concomitant]
     Active Substance: POTASSIUM CHLORIDE
     Indication: PROPHYLAXIS
     Dates: start: 20110915
  21. BETNESOL [Concomitant]
     Active Substance: BETAMETHASONE
     Indication: PRODUCT USED FOR UNKNOWN INDICATION
     Dosage: 1 G, UNK
     Route: 065
     Dates: start: 20110927
  22. LEVOTHYROX [Concomitant]
     Active Substance: LEVOTHYROXINE
     Indication: HYPOTHYROIDISM
     Dosage: 150 ?G, UNK
     Route: 048
     Dates: start: 2001
  23. NEORECORMON [Concomitant]
     Active Substance: ERYTHROPOIETIN
     Dosage: 3000 IU, UNK
     Route: 058
     Dates: start: 20110701
  24. ARTISIAL [Concomitant]
     Active Substance: CALCIUM CHLORIDE\MAGNESIUM CHLORIDE\POTASSIUM CHLORIDE\POTASSIUM PHOSPHATE, DIBASIC\POTASSIUM PHOSPHATE, MONOBASIC\SODIUM CHLORIDE
     Indication: DRY MOUTH
     Dosage: 3 DF, QD
     Route: 065
     Dates: start: 20110606
  25. STILNOX [Concomitant]
     Active Substance: ZOLPIDEM TARTRATE
     Indication: INSOMNIA
  26. AMOXYCILLIN [Concomitant]
     Active Substance: AMOXICILLIN
     Indication: ERYSIPELAS
     Dates: start: 20110909

REACTIONS (9)
  - Erysipelas [None]
  - Renal failure [None]
  - Cholestasis [None]
  - Panniculitis [Recovered/Resolved]
  - Autoimmune haemolytic anaemia [None]
  - Atrial fibrillation [None]
  - Anaemia [Recovered/Resolved]
  - Type 2 diabetes mellitus [None]
  - Post thrombotic syndrome [Recovered/Resolved]

NARRATIVE: CASE EVENT DATE: 20110606
